FAERS Safety Report 9057498 (Version 5)
Quarter: 2013Q2

REPORT INFORMATION
  Report Type: Report from Study
  Country: JP (occurrence: JP)
  Receive Date: 20130115
  Receipt Date: 20130624
  Transmission Date: 20140414
  Serious: Yes (Life-Threatening, Hospitalization, Other)
  Sender: FDA-Public Use
  Company Number: JP-PFIZER INC-2012026846

PATIENT
  Age: 61 Year
  Sex: Male
  Weight: 57 kg

DRUGS (14)
  1. TORISEL [Suspect]
     Indication: METASTATIC RENAL CELL CARCINOMA
     Dosage: 25 MG, WEEKLY
     Route: 042
     Dates: start: 20111007, end: 20111028
  2. TORISEL [Suspect]
     Dosage: 25 MG, WEEKLY
     Route: 042
     Dates: start: 20111206, end: 20120120
  3. RESTAMIN [Concomitant]
     Indication: PROPHYLAXIS
     Dosage: 50 MG, ONCE ON EACH DAY WHEN TEMSIROLIMUS WAS ADMINISTERED
     Route: 048
  4. BUP-4 [Concomitant]
     Dosage: 10 MG, 1X/DAY
     Route: 048
  5. PARIET [Concomitant]
     Dosage: 10 MG, 1X/DAY
     Route: 048
  6. DEPAS [Concomitant]
     Dosage: 0.5 MG, 3X/DAY
     Route: 048
  7. ALLOID G [Concomitant]
     Dosage: 20 MG, 3X/DAY
     Route: 048
  8. ULCERLMIN [Concomitant]
     Dosage: 1 G, 3X/DAY
  9. SELBEX [Concomitant]
     Dosage: 50 MG, 3X/DAY
     Route: 048
  10. MAGNESIUM OXIDE [Concomitant]
     Dosage: 0.5 MG, 3X/DAY
     Route: 048
  11. MUCODYNE [Concomitant]
     Dosage: 500 MG, 3X/DAY
     Route: 048
  12. NAIXAN [Concomitant]
     Dosage: 100 MG, 3X/DAY
     Route: 048
  13. DUROTEP MT PATCH [Concomitant]
     Dosage: 18.9 MG, ONCE IN THREE DAYS
     Route: 061
  14. LYRICA [Concomitant]
     Dosage: 75 MG, 2X/DAY
     Route: 048
     Dates: start: 20111110

REACTIONS (2)
  - Cholecystitis [Recovered/Resolved]
  - Pneumonia bacterial [Recovering/Resolving]
